FAERS Safety Report 8277023 (Version 2)
Quarter: 2012Q4

REPORT INFORMATION
  Report Type: Report from Study
  Country: PE (occurrence: PE)
  Receive Date: 20111206
  Receipt Date: 20121123
  Transmission Date: 20130627
  Serious: Yes (Hospitalization)
  Sender: FDA-Public Use
  Company Number: PHHO2010PE07998

PATIENT
  Sex: Male
  Weight: 49 kg

DRUGS (1)
  1. AFINITOR [Suspect]
     Indication: METASTATIC GASTRIC CANCER
     Dosage: 10 mg, QD
     Route: 048
     Dates: start: 20100414, end: 20100521

REACTIONS (8)
  - Gastrointestinal haemorrhage [Recovered/Resolved]
  - Gastric mucosal lesion [Recovered/Resolved]
  - Diarrhoea [Recovered/Resolved]
  - Asthenia [Recovered/Resolved]
  - Dehydration [Recovered/Resolved]
  - Faeces discoloured [Recovered/Resolved]
  - Melaena [Recovered/Resolved]
  - Haemoglobin decreased [Recovered/Resolved]
